FAERS Safety Report 7137606-5 (Version None)
Quarter: 2010Q4

REPORT INFORMATION
  Report Type: 
  Country: None (occurrence: None)
  Receive Date: 20101103
  Receipt Date: 20100513
  Transmission Date: 20110411
  Serious: Yes (Hospitalization)
  Sender: FDA-Public Use
  Company Number: 2010S1000266

PATIENT
  Age: 66 Year
  Sex: Male
  Weight: 147.5 kg

DRUGS (17)
  1. CUBICIN [Suspect]
     Indication: SEPSIS
     Dosage: 6 MG/KG;Q24H;IV
     Route: 042
     Dates: start: 20100122, end: 20100201
  2. ENOXAPARIN SODIUM [Concomitant]
  3. HYDROCODONE [Concomitant]
  4. SIMVASTATIN [Concomitant]
  5. FUROSEMIDE [Concomitant]
  6. LEVOFLOXACIN [Concomitant]
  7. TRAMADOL [Concomitant]
  8. WARFARIN [Concomitant]
  9. INSULIN GLARGINE [Concomitant]
  10. LISINOPRIL [Concomitant]
  11. CARVEDILOL [Concomitant]
  12. FERROUS SULFATE [Concomitant]
  13. ISOSORBIDE MONONITRATE [Concomitant]
  14. POTASSIUM CHLORIDE [Concomitant]
  15. ASCORBIC ACID [Concomitant]
  16. ESOMEPRAZOLE [Concomitant]
  17. CLOTRIMAZOLE [Concomitant]

REACTIONS (3)
  - DRUG HYPERSENSITIVITY [None]
  - EOSINOPHILIC PNEUMONIA [None]
  - HAEMOPTYSIS [None]
